FAERS Safety Report 6013798-6 (Version None)
Quarter: 2008Q4

REPORT INFORMATION
  Report Type: 
  Country: None (occurrence: None)
  Receive Date: 20081219
  Receipt Date: 20081208
  Transmission Date: 20090506
  Serious: Yes (Hospitalization, Other)
  Sender: FDA-Public Use
  Company Number: US-PFIZER INC-2008155348

PATIENT
  Age: 53 Year
  Sex: Female

DRUGS (8)
  1. CISPLATIN [Suspect]
     Indication: METASTASES TO LIVER
     Dosage: 1 MG/ML
  2. CISPLATIN [Suspect]
     Dosage: 10 MG/ML
  3. CISPLATIN [Suspect]
     Dosage: 20 MG/ML
  4. CISPLATIN [Suspect]
     Dosage: 50 MG/ML
  5. CISPLATIN [Suspect]
     Dosage: 100 MG/ML
  6. DOXORUBICIN HCL [Suspect]
     Indication: METASTASES TO LIVER
     Dosage: 30 MG
  7. MITOMYCIN [Suspect]
     Indication: METASTASES TO LIVER
     Dosage: 20 MG
  8. IODIXANOL [Suspect]
     Indication: METASTASES TO LIVER
     Dosage: 3200 MG

REACTIONS (3)
  - ENCEPHALOPATHY [None]
  - PNEUMATOSIS INTESTINALIS [None]
  - PULMONARY HYPERTENSION [None]
